FAERS Safety Report 25885100 (Version 1)
Quarter: 2025Q4

REPORT INFORMATION
  Report Type: Spontaneous
  Country: US (occurrence: US)
  Receive Date: 20251006
  Receipt Date: 20251006
  Transmission Date: 20260118
  Serious: No
  Sender: GILEAD
  Company Number: US-GILEAD-2025-0730573

PATIENT
  Sex: Female

DRUGS (2)
  1. LIVDELZI [Suspect]
     Active Substance: SELADELPAR LYSINE
     Indication: Primary biliary cholangitis
     Dosage: UNK
     Route: 065
     Dates: start: 202507
  2. URSODIOL [Concomitant]
     Active Substance: URSODIOL

REACTIONS (3)
  - Alopecia [Recovering/Resolving]
  - Rash [Not Recovered/Not Resolved]
  - Dizziness [Recovered/Resolved]
